FAERS Safety Report 15832549 (Version 3)
Quarter: 2019Q1

REPORT INFORMATION
  Report Type: Spontaneous
  Country: IT (occurrence: IT)
  Receive Date: 20190116
  Receipt Date: 20190204
  Transmission Date: 20190417
  Serious: Yes (Other)
  Sender: FDA-Public Use
  Company Number: PHHY2019IT002549

PATIENT
  Age: 41 Year
  Sex: Male

DRUGS (5)
  1. IBUPROFEN. [Suspect]
     Active Substance: IBUPROFEN
     Dosage: 60 MG, IBUPROFEN 600 MG 1 ENVELOPE DILUTED IN 10 ML OF WATER, FOLLOWING ADMINISTRATION EVERY 120 MIN
     Route: 065
  2. ACETYLSALICYLIC ACID [Suspect]
     Active Substance: ASPIRIN
     Indication: PRODUCT USED FOR UNKNOWN INDICATION
     Dosage: UNK
     Route: 065
  3. MONTELUKAST [Concomitant]
     Active Substance: MONTELUKAST SODIUM
     Indication: IMMUNE TOLERANCE INDUCTION
     Dosage: 10 MG, QD IN THE MORNING
     Route: 065
  4. IBUPROFEN. [Suspect]
     Active Substance: IBUPROFEN
     Indication: IMMUNE TOLERANCE INDUCTION
     Dosage: 30 MG, IBUPROFEN 600 MG 1 ENVELOPE DILUTED IN 10 ML OF WATER, FOLLOWING ADMINISTRATION EVERY 120 MIN
     Route: 065
  5. CETIRIZINE [Concomitant]
     Active Substance: CETIRIZINE HYDROCHLORIDE
     Indication: IMMUNE TOLERANCE INDUCTION
     Dosage: 1 TABLET TWICE A DAY, MORNING AND EVENING
     Route: 065

REACTIONS (4)
  - Urticaria [Recovered/Resolved]
  - Angioedema [Unknown]
  - Erythema [Recovered/Resolved]
  - Drug intolerance [Unknown]
